FAERS Safety Report 8602450 (Version 4)
Quarter: 2012Q4

REPORT INFORMATION
  Report Type: Report from Study
  Country: MX (occurrence: MX)
  Receive Date: 20120607
  Receipt Date: 20120910
  Transmission Date: 20130627
  Serious: Yes (Hospitalization, Other)
  Sender: FDA-Public Use
  Company Number: MX-NOVOPROD-352612

PATIENT
  Age: 41 Year
  Sex: Female
  Weight: 104.9 kg

DRUGS (5)
  1. LIRAGLUTIDE FLEXPEN [Suspect]
     Indication: OBESITY
     Dosage: 0.6 mg, qd
     Route: 058
     Dates: start: 20110815, end: 20110821
  2. LIRAGLUTIDE FLEXPEN [Suspect]
     Dosage: 1.2 mg, qd
     Route: 058
     Dates: start: 20110822, end: 20110828
  3. LIRAGLUTIDE FLEXPEN [Suspect]
     Dosage: 1.8 mg, qd
     Route: 058
     Dates: start: 20110829, end: 20110904
  4. LIRAGLUTIDE FLEXPEN [Suspect]
     Dosage: 2.4 mg, qd
     Route: 058
     Dates: start: 20110905, end: 20110911
  5. LIRAGLUTIDE FLEXPEN [Suspect]
     Dosage: 3.0 mg, qd
     Route: 058
     Dates: start: 20110912, end: 20120524

REACTIONS (1)
  - Cholelithiasis [Recovered/Resolved]
